FAERS Safety Report 7224279-6 (Version None)
Quarter: 2011Q1

REPORT INFORMATION
  Report Type: 
  Country: None (occurrence: None)
  Receive Date: 20110104
  Receipt Date: 20101220
  Transmission Date: 20110831
  Serious: Yes (Other)
  Sender: FDA-Public Use
  Company Number: ACO_21059_2010

PATIENT
  Age: 33 Year
  Sex: Female
  Weight: 59 kg

DRUGS (2)
  1. AMPYRA [Suspect]
     Indication: HYPOAESTHESIA
     Dosage: 10 MG, BID, ORAL
     Route: 048
     Dates: start: 20100301
  2. ^MEDICATOIN FOR MS-RELATED CONDITIONS^ [Concomitant]

REACTIONS (2)
  - OFF LABEL USE [None]
  - INFECTION [None]
